FAERS Safety Report 5194095-8 (Version None)
Quarter: 2006Q4

REPORT INFORMATION
  Report Type: 
  Country: None (occurrence: None)
  Receive Date: 20061226
  Receipt Date: 20061220
  Transmission Date: 20070319
  Serious: Yes (Hospitalization)
  Sender: FDA-Public Use
  Company Number: S06-USA-05371-01

PATIENT
  Age: 16 Year
  Sex: Female

DRUGS (2)
  1. LEXAPRO [Suspect]
     Indication: DEPRESSION
     Dosage: 10 MG QD PO
     Route: 048
     Dates: start: 20040601, end: 20041201
  2. LEXAPRO [Suspect]
     Indication: DISTURBANCE IN ATTENTION
     Dosage: 10 MG QD PO
     Route: 048
     Dates: start: 20040601, end: 20041201

REACTIONS (5)
  - CONDITION AGGRAVATED [None]
  - DEPRESSION [None]
  - INTENTIONAL SELF-INJURY [None]
  - SUICIDAL IDEATION [None]
  - SUICIDE ATTEMPT [None]
